FAERS Safety Report 4943146-1 (Version None)
Quarter: 2006Q1

REPORT INFORMATION
  Report Type: 
  Country: None (occurrence: None)
  Receive Date: 20060314
  Receipt Date: 20051013
  Transmission Date: 20060701
  Serious: Yes (Hospitalization, Disabling)
  Sender: FDA-Public Use
  Company Number: PR-MERCK-0510USA07185

PATIENT
  Age: 51 Year
  Sex: Male
  Weight: 82 kg

DRUGS (4)
  1. VIOXX [Suspect]
     Indication: BACK PAIN
     Route: 048
     Dates: start: 19990101, end: 20040101
  2. INSULIN [Concomitant]
     Route: 065
  3. LIPITOR [Concomitant]
     Route: 065
  4. CELEBREX [Concomitant]
     Route: 065
     Dates: start: 19990101, end: 20020101

REACTIONS (9)
  - ABDOMINAL PAIN UPPER [None]
  - ACUTE MYOCARDIAL INFARCTION [None]
  - BACK INJURY [None]
  - BLOOD CHOLESTEROL INCREASED [None]
  - DIABETIC NEUROPATHY [None]
  - HYPERLIPIDAEMIA [None]
  - NECK PAIN [None]
  - TENDONITIS [None]
  - VENTRICULAR DYSFUNCTION [None]
